FAERS Safety Report 17855875 (Version 1)
Quarter: 2020Q2

REPORT INFORMATION
  Report Type: Spontaneous
  Country: DE (occurrence: DE)
  Receive Date: 20200603
  Receipt Date: 20200603
  Transmission Date: 20200714
  Serious: Yes (Other)
  Sender: FDA-Public Use
  Company Number: PHHY2019DE060509

PATIENT
  Age: 85 Year
  Sex: Female

DRUGS (2)
  1. OPIPRAMOL [Suspect]
     Active Substance: OPIPRAMOL
     Indication: ANXIETY
     Dosage: 100 MG, QD
     Route: 065
  2. RISPERIDONE. [Suspect]
     Active Substance: RISPERIDONE
     Indication: ANXIETY
     Route: 065

REACTIONS (3)
  - Gait disturbance [Unknown]
  - Drug interaction [Recovered/Resolved]
  - Parkinsonism [Recovered/Resolved]
